FAERS Safety Report 23323706 (Version 1)
Quarter: 2023Q4

REPORT INFORMATION
  Report Type: Other
  Country: US (occurrence: None)
  Receive Date: 20231220
  Receipt Date: 20231220
  Transmission Date: 20240110
  Serious: No
  Sender: FDA-Public Use
  Company Number: US-ROCHE-3448673

PATIENT
  Age: 56 Year
  Sex: Female

DRUGS (4)
  1. RITUXIMAB [Suspect]
     Active Substance: RITUXIMAB
     Indication: Necrobiosis lipoidica diabeticorum
     Route: 041
  2. AZATHIOPRINE [Suspect]
     Active Substance: AZATHIOPRINE
     Indication: Necrobiosis lipoidica diabeticorum
     Route: 065
  3. PREDNISONE [Suspect]
     Active Substance: PREDNISONE
     Indication: Necrobiosis lipoidica diabeticorum
     Route: 048
  4. METHOTREXATE [Suspect]
     Active Substance: METHOTREXATE
     Indication: Necrobiosis lipoidica diabeticorum
     Route: 065

REACTIONS (2)
  - Cytomegalovirus colitis [Unknown]
  - Treatment failure [Unknown]
